FAERS Safety Report 17100662 (Version 3)
Quarter: 2020Q1

REPORT INFORMATION
  Report Type: Report from Study
  Country: US (occurrence: US)
  Receive Date: 20191202
  Receipt Date: 20200107
  Transmission Date: 20200409
  Serious: No
  Sender: FDA-Public Use
  Company Number: US-SA-2019SA325528

PATIENT
  Age: 62 Year
  Sex: Female

DRUGS (2)
  1. DUPILUMAB [Suspect]
     Active Substance: DUPILUMAB
     Indication: ECZEMA
     Dosage: 300 MG, QOW
     Route: 058
     Dates: start: 201911, end: 201912
  2. DUPILUMAB [Suspect]
     Active Substance: DUPILUMAB
     Indication: DERMATITIS ATOPIC
     Dosage: 600 MG, 1X
     Route: 058
     Dates: start: 20191106, end: 20191106

REACTIONS (6)
  - Swelling face [Not Recovered/Not Resolved]
  - Dyskinesia [Unknown]
  - Dermatitis allergic [Unknown]
  - Pain [Unknown]
  - Skin mass [Unknown]
  - Tenderness [Unknown]

NARRATIVE: CASE EVENT DATE: 201911
